FAERS Safety Report 24840723 (Version 5)
Quarter: 2025Q1

REPORT INFORMATION
  Report Type: Spontaneous
  Country: BE (occurrence: BE)
  Receive Date: 20250114
  Receipt Date: 20250317
  Transmission Date: 20250409
  Serious: No
  Sender: PFIZER
  Company Number: BE-PFIZER INC-202500005628

PATIENT
  Age: 66 Year
  Sex: Male

DRUGS (1)
  1. SOMATROPIN [Suspect]
     Active Substance: SOMATROPIN

REACTIONS (3)
  - Device use issue [Unknown]
  - Device information output issue [Unknown]
  - Device mechanical issue [Unknown]
